FAERS Safety Report 11883268 (Version 1)
Quarter: 2015Q4

REPORT INFORMATION
  Report Type: Spontaneous
  Country: US (occurrence: US)
  Receive Date: 20151231
  Receipt Date: 20151231
  Transmission Date: 20160305
  Serious: Yes (Other)
  Sender: FDA-Public Use
  Company Number: US-BAYER-2015-496230

PATIENT
  Age: 35 Year
  Sex: Female
  Weight: 58.96 kg

DRUGS (2)
  1. BAYER LOW DOSE [Suspect]
     Active Substance: ASPIRIN
     Indication: COAGULOPATHY
     Dosage: 1 DF, QD; WITH FOOD
     Route: 048
     Dates: start: 201507, end: 2015
  2. BAYER ASPIRIN REGIMEN CHEWABLE LOW DOSE ASPIRIN ORANGE [Suspect]
     Active Substance: ASPIRIN
     Dosage: EVERY DAY

REACTIONS (8)
  - Gastric haemorrhage [Recovered/Resolved]
  - Off label use [None]
  - Limb discomfort [Recovered/Resolved]
  - Pain in extremity [Unknown]
  - Product physical issue [None]
  - Limb injury [None]
  - Discomfort [Recovered/Resolved]
  - Abdominal pain upper [Recovered/Resolved]

NARRATIVE: CASE EVENT DATE: 2015
